FAERS Safety Report 5386737-9 (Version None)
Quarter: 2007Q3

REPORT INFORMATION
  Report Type: 
  Country: None (occurrence: None)
  Receive Date: 20070713
  Receipt Date: 20070711
  Transmission Date: 20080115
  Serious: Yes (Death)
  Sender: FDA-Public Use
  Company Number: US-ASTRAZENECA-2007UW16134

PATIENT
  Age: 68 Year
  Sex: Male

DRUGS (5)
  1. TOPROL-XL [Suspect]
     Route: 048
  2. WARFARIN SODIUM [Suspect]
     Dates: start: 20060912
  3. NORVASC [Suspect]
  4. ALTACE [Suspect]
  5. OXYCODONE HCL [Suspect]

REACTIONS (4)
  - FALL [None]
  - HAEMORRHAGE INTRACRANIAL [None]
  - SKIN LACERATION [None]
  - SYNCOPE [None]
